FAERS Safety Report 8912955 (Version 1)
Quarter: 2012Q4

REPORT INFORMATION
  Report Type: Report from Study
  Country: AU (occurrence: AU)
  Receive Date: 20121116
  Receipt Date: 20121116
  Transmission Date: 20130627
  Serious: Yes (Other)
  Sender: FDA-Public Use
  Company Number: AU-JNJFOC-20121104850

PATIENT
  Age: 72 Year
  Sex: Female

DRUGS (3)
  1. STELARA [Suspect]
     Indication: PSORIASIS
     Route: 058
     Dates: start: 20110601
  2. STELARA [Suspect]
     Indication: PSORIASIS
     Route: 058
     Dates: start: 20120822
  3. METHOTREXATE [Concomitant]

REACTIONS (4)
  - Intestinal operation [Unknown]
  - Arthritis [Unknown]
  - Rash [Unknown]
  - Postoperative wound infection [Unknown]
